FAERS Safety Report 20871597 (Version 1)
Quarter: 2022Q2

REPORT INFORMATION
  Report Type: Spontaneous
  Country: US (occurrence: US)
  Receive Date: 20220525
  Receipt Date: 20220525
  Transmission Date: 20220720
  Serious: Yes (Other)
  Sender: FDA-Public Use
  Company Number: US-BRISTOL-MYERS SQUIBB COMPANY-2022-039299

PATIENT
  Age: 62 Year
  Sex: Male
  Weight: 97 kg

DRUGS (1)
  1. SPRYCEL [Suspect]
     Active Substance: DASATINIB
     Indication: Chronic myeloid leukaemia
     Dosage: DOSE : UNAVAILABLE;     FREQ : ONCE DAILY
     Route: 065
     Dates: start: 202012, end: 20211215

REACTIONS (2)
  - Pleural effusion [Unknown]
  - Thrombosis [Unknown]

NARRATIVE: CASE EVENT DATE: 20211215
